FAERS Safety Report 10015767 (Version 2)
Quarter: 2015Q3

REPORT INFORMATION
  Report Type: Spontaneous
  Country: US (occurrence: US)
  Receive Date: 20140317
  Receipt Date: 20150911
  Transmission Date: 20151125
  Serious: Yes (Hospitalization, Other)
  Sender: FDA-Public Use
  Company Number: US-GLAXOSMITHKLINE-A0850706A

PATIENT
  Sex: Female

DRUGS (4)
  1. ACYCLOVIR. [Suspect]
     Active Substance: ACYCLOVIR
     Indication: MENINGITIS
     Route: 042
     Dates: start: 2011
  2. MORPHINE [Suspect]
     Active Substance: MORPHINE
     Indication: PRODUCT USED FOR UNKNOWN INDICATION
     Route: 065
  3. VALTREX [Suspect]
     Active Substance: VALACYCLOVIR HYDROCHLORIDE
     Indication: MENINGITIS
     Dosage: 500 MG/DAY, INCREASED TO 1000 MG/DAY, INCREASED TO 1500MG/DAY, INCREASED TO 3000 MG/DAY, INCREA[...]
     Route: 048
     Dates: start: 2006
  4. VALACYCLOVIR [Suspect]
     Active Substance: VALACYCLOVIR HYDROCHLORIDE
     Indication: MENINGITIS
     Route: 048

REACTIONS (17)
  - Headache [Unknown]
  - Amnesia [Unknown]
  - Tinnitus [Unknown]
  - Agitation [Unknown]
  - Gastrointestinal disorder [Not Recovered/Not Resolved]
  - Pain [Not Recovered/Not Resolved]
  - Central venous catheterisation [Not Recovered/Not Resolved]
  - Tongue discolouration [Not Recovered/Not Resolved]
  - Lip discolouration [Not Recovered/Not Resolved]
  - Vein disorder [Not Recovered/Not Resolved]
  - Malaise [Not Recovered/Not Resolved]
  - Infusion site extravasation [Not Recovered/Not Resolved]
  - Cognitive disorder [Not Recovered/Not Resolved]
  - Aphasia [Not Recovered/Not Resolved]
  - Thrombosis [Not Recovered/Not Resolved]
  - Drug ineffective [Not Recovered/Not Resolved]
  - Disability [Not Recovered/Not Resolved]

NARRATIVE: CASE EVENT DATE: 200603
